FAERS Safety Report 17814760 (Version 2)
Quarter: 2020Q2

REPORT INFORMATION
  Report Type: Spontaneous
  Country: US (occurrence: US)
  Receive Date: 20200522
  Receipt Date: 20200606
  Transmission Date: 20200714
  Serious: Yes (Death, Life-Threatening, Hospitalization, Other)
  Sender: FDA-Public Use
  Company Number: US-ACCORD-182201

PATIENT
  Age: 59 Year
  Sex: Female

DRUGS (3)
  1. MYCOPHENOLATE MOFETIL/MYCOPHENOLATE SODIUM/MYCOPHENOLIC ACID [Suspect]
     Active Substance: MYCOPHENOLIC ACID
     Indication: IMMUNOSUPPRESSION
  2. LOPINAVIR/RITONAVIR [Interacting]
     Active Substance: LOPINAVIR\RITONAVIR
     Indication: COVID-19
     Dosage: LOPINAVIR/RITONAVIR 400 MG TWICE DAILY FOR 5 DAYS
     Dates: start: 202003, end: 202003
  3. TACROLIMUS. [Interacting]
     Active Substance: TACROLIMUS
     Indication: IMMUNOSUPPRESSION
     Dosage: 6MG TWICE DAILY WITH GOAL TROUGH LEVEL OF 4-6 NG/ML

REACTIONS (9)
  - Multiple organ dysfunction syndrome [Fatal]
  - Drug interaction [Unknown]
  - Renal failure [Fatal]
  - Acute respiratory distress syndrome [Fatal]
  - Immunosuppressant drug level increased [Unknown]
  - Vasoplegia syndrome [Fatal]
  - Pneumocystis jirovecii pneumonia [Fatal]
  - COVID-19 [Fatal]
  - Respiratory failure [Fatal]

NARRATIVE: CASE EVENT DATE: 2020
